FAERS Safety Report 11019535 (Version 4)
Quarter: 2015Q2

REPORT INFORMATION
  Report Type: Spontaneous
  Country: US (occurrence: US)
  Receive Date: 20150412
  Receipt Date: 20150525
  Transmission Date: 20150821
  Serious: No
  Sender: FDA-Public Use
  Company Number: US-JNJFOC-20150114347

PATIENT
  Sex: Female

DRUGS (1)
  1. LEVAQUIN [Suspect]
     Active Substance: LEVOFLOXACIN
     Indication: PLEURISY
     Route: 065

REACTIONS (6)
  - Rash [Unknown]
  - Tendon pain [Unknown]
  - Pruritus generalised [Unknown]
  - Tendonitis [Unknown]
  - Disturbance in attention [Unknown]
  - Urticaria [Unknown]
